FAERS Safety Report 21848286 (Version 4)
Quarter: 2023Q2

REPORT INFORMATION
  Report Type: Report from Study
  Country: US (occurrence: US)
  Receive Date: 20230111
  Receipt Date: 20230620
  Transmission Date: 20230722
  Serious: Yes (Hospitalization, Other)
  Sender: FDA-Public Use
  Company Number: US-ABBVIE-4264186

PATIENT
  Sex: Male

DRUGS (1)
  1. IMBRUVICA [Suspect]
     Active Substance: IBRUTINIB
     Indication: Chronic lymphocytic leukaemia
     Route: 048
     Dates: start: 202011

REACTIONS (8)
  - Prostatic disorder [Unknown]
  - White blood cell count increased [Unknown]
  - Prostatectomy [Unknown]
  - Blood urine present [Unknown]
  - Urinary bladder haemorrhage [Unknown]
  - Prostatomegaly [Unknown]
  - Haemorrhage urinary tract [Unknown]
  - Prostatic haemorrhage [Unknown]
